FAERS Safety Report 16023968 (Version 1)
Quarter: 2019Q1

REPORT INFORMATION
  Report Type: Spontaneous
  Country: MX (occurrence: MX)
  Receive Date: 20190301
  Receipt Date: 20190301
  Transmission Date: 20190418
  Serious: Yes (Death)
  Sender: FDA-Public Use
  Company Number: MX-PFIZER INC-2019091439

PATIENT
  Age: 57 Year
  Sex: Male

DRUGS (1)
  1. SUNITINIB MALATE. [Suspect]
     Active Substance: SUNITINIB MALATE
     Dosage: 50 MG, 1X/DAY, SCHEME 4:2
     Route: 048

REACTIONS (3)
  - Diarrhoea [Fatal]
  - Dehydration [Fatal]
  - Electrolyte imbalance [Fatal]
